FAERS Safety Report 9817574 (Version 2)
Quarter: 2014Q2

REPORT INFORMATION
  Report Type: Spontaneous
  Country: US (occurrence: None)
  Receive Date: 20131127
  Receipt Date: 20131127
  Transmission Date: 20141212
  Serious: No
  Sender: FDA-Public Use
  Company Number: 222803

PATIENT
  Age: 56 Year
  Sex: Male

DRUGS (2)
  1. PICATO (INGENOL MEBUTATE)(0.015 %, GEL) [Suspect]
     Indication: ACTINIC KERATOSIS
     Route: 061
     Dates: start: 20130719, end: 20130720
  2. IBUPROFEN(IBUPROFEN) [Concomitant]

REACTIONS (12)
  - Swelling face [None]
  - Application site dryness [None]
  - Application site reaction [None]
  - Application site haemorrhage [None]
  - Application site discharge [None]
  - Eye swelling [None]
  - Application site scab [None]
  - Application site pustules [None]
  - Application site exfoliation [None]
  - Application site vesicles [None]
  - Incorrect drug administration duration [None]
  - Drug administration error [None]
